FAERS Safety Report 9533653 (Version 1)
Quarter: 2013Q3

REPORT INFORMATION
  Report Type: Report from Study
  Country: CO (occurrence: CO)
  Receive Date: 20130918
  Receipt Date: 20130918
  Transmission Date: 20140515
  Serious: Yes (Hospitalization, Other)
  Sender: FDA-Public Use
  Company Number: CO-BAYER-2013-112067

PATIENT
  Age: 37 Year
  Sex: Female

DRUGS (1)
  1. BETAFERON [Suspect]
     Indication: MULTIPLE SCLEROSIS
     Dosage: 250 ?G/ML, UNK
     Dates: start: 20090522

REACTIONS (6)
  - Oedema peripheral [None]
  - Ecchymosis [None]
  - Melaena [None]
  - Anaemia [None]
  - Renal failure [None]
  - Sepsis [None]
